FAERS Safety Report 5971290-9 (Version None)
Quarter: 2008Q4

REPORT INFORMATION
  Report Type: 
  Country: None (occurrence: None)
  Receive Date: 20081128
  Receipt Date: 20081118
  Transmission Date: 20090506
  Serious: Yes (Hospitalization, Other)
  Sender: FDA-Public Use
  Company Number: US-PFIZER INC-2008097442

PATIENT
  Sex: Male
  Weight: 71.7 kg

DRUGS (13)
  1. MARAVIROC [Suspect]
     Route: 048
     Dates: start: 20080923
  2. DARUNAVIR [Suspect]
     Route: 048
     Dates: start: 20080923
  3. RALTEGRAVIR [Suspect]
     Route: 048
     Dates: start: 20080923
  4. ETRAVIRINE [Suspect]
     Route: 048
     Dates: start: 20080923
  5. RITONAVIR [Suspect]
     Route: 048
     Dates: start: 20080923
  6. ITRACONAZOLE [Concomitant]
     Route: 048
     Dates: start: 20040917
  7. BACTRIM DS [Concomitant]
     Dosage: TEXT:1 TAB-FREQ:DAILY
     Route: 048
     Dates: start: 19971120
  8. ZITHROMAX [Concomitant]
     Route: 048
     Dates: start: 19971120
  9. LOMOTIL [Concomitant]
     Dosage: TEXT:1-2 TABS-FREQ:QID
     Route: 048
     Dates: start: 20080204
  10. KETOCONAZOLE [Concomitant]
     Route: 061
     Dates: start: 20080204
  11. IBUPROFEN TABLETS [Concomitant]
     Route: 048
     Dates: start: 20080917
  12. AVELOX [Concomitant]
     Route: 048
     Dates: start: 20081021
  13. PRILOSEC [Concomitant]
     Route: 048
     Dates: start: 20081027

REACTIONS (3)
  - CREPITATIONS [None]
  - HICCUPS [None]
  - IMMUNE RECONSTITUTION SYNDROME [None]
